FAERS Safety Report 10263006 (Version 7)
Quarter: 2015Q1

REPORT INFORMATION
  Report Type: Spontaneous
  Country: US (occurrence: US)
  Receive Date: 20140626
  Receipt Date: 20150313
  Transmission Date: 20150720
  Serious: Yes (Hospitalization, Congenital Anomaly, Other)
  Sender: FDA-Public Use
  Company Number: US-ELI_LILLY_AND_COMPANY-US201406008342

PATIENT
  Age: 0 Day

DRUGS (2)
  1. FLAGYL [Concomitant]
     Active Substance: METRONIDAZOLE\METRONIDAZOLE HYDROCHLORIDE
     Indication: GARDNERELLA INFECTION
     Route: 064
  2. PROZAC [Suspect]
     Active Substance: FLUOXETINE HYDROCHLORIDE
     Indication: DEPRESSION
     Dosage: 20 MG, QD
     Route: 064
     Dates: start: 20001224

REACTIONS (6)
  - Seizure [Unknown]
  - Foetal exposure during pregnancy [Recovered/Resolved]
  - Plagiocephaly [Recovering/Resolving]
  - Developmental delay [Recovering/Resolving]
  - Petechiae [Unknown]
  - Hypotonia [Unknown]

NARRATIVE: CASE EVENT DATE: 20020704
